FAERS Safety Report 14882763 (Version 2)
Quarter: 2018Q2

REPORT INFORMATION
  Report Type: Spontaneous
  Country: VE (occurrence: VE)
  Receive Date: 20180511
  Receipt Date: 20180531
  Transmission Date: 20180711
  Serious: Yes (Death, Hospitalization, Congenital Anomaly, Other)
  Sender: FDA-Public Use
  Company Number: VE-MYLANLABS-2018M1031037

PATIENT
  Sex: Male
  Weight: 1.5 kg

DRUGS (1)
  1. ISOTRETINOIN. [Suspect]
     Active Substance: ISOTRETINOIN
     Indication: PRODUCT USED FOR UNKNOWN INDICATION
     Route: 064

REACTIONS (8)
  - Neonatal respiratory distress syndrome [Fatal]
  - Hypothermia neonatal [Unknown]
  - Foetal retinoid syndrome [Fatal]
  - Skin atrophy [Unknown]
  - Foetal exposure during pregnancy [Recovered/Resolved]
  - Pyelocaliectasis [Unknown]
  - Apnoea [Fatal]
  - Cardio-respiratory arrest [Fatal]
